FAERS Safety Report 6688527-3 (Version None)
Quarter: 2010Q2

REPORT INFORMATION
  Report Type: 
  Country: None (occurrence: None)
  Receive Date: 20100420
  Receipt Date: 20100414
  Transmission Date: 20101027
  Serious: Yes (Life-Threatening, Hospitalization)
  Sender: FDA-Public Use
  Company Number: NL-AMGEN-KDC400034

PATIENT
  Sex: Female

DRUGS (16)
  1. PEGFILGRASTIM [Suspect]
     Indication: NEOPLASM MALIGNANT
     Route: 058
     Dates: start: 20100304
  2. RITUXIMAB [Suspect]
     Route: 042
     Dates: start: 20100303
  3. PREDNISONE [Suspect]
     Route: 048
     Dates: start: 20100303
  4. CYCLOPHOSPHAMIDE [Suspect]
     Route: 042
     Dates: start: 20100303
  5. DOXORUBICIN HCL [Suspect]
     Route: 042
     Dates: start: 20100303
  6. VINCRISTINE [Suspect]
     Route: 042
     Dates: start: 20100303
  7. NEXIUM [Concomitant]
     Dates: start: 20100304
  8. VERAPAMIL [Concomitant]
     Dates: start: 20100304
  9. ATACAND [Concomitant]
     Dates: start: 20100304
  10. ELTROXIN [Concomitant]
     Dates: start: 20100304
  11. CETIRIZINE HCL [Concomitant]
     Dates: start: 20100304
  12. MAGNESIA [Concomitant]
     Dates: start: 20100304
  13. BISACODYL [Concomitant]
     Dates: start: 20100304
  14. SODIUM PICOSULFATE [Concomitant]
     Dates: start: 20100304
  15. BACTRIM [Concomitant]
     Dates: start: 20100330, end: 20100331
  16. VALACICLOVIR [Concomitant]
     Dates: start: 20100330, end: 20100331

REACTIONS (3)
  - DEHYDRATION [None]
  - GASTRITIS [None]
  - HYPOTENSION [None]
